FAERS Safety Report 14923589 (Version 2)
Quarter: 2018Q4

REPORT INFORMATION
  Report Type: Spontaneous
  Country: US (occurrence: US)
  Receive Date: 20180522
  Receipt Date: 20181019
  Transmission Date: 20190204
  Serious: Yes (Life-Threatening, Other)
  Sender: FDA-Public Use
  Company Number: US-DRREDDYS-USA/USA/18/0099119

PATIENT
  Age: 21 Year
  Sex: Male

DRUGS (6)
  1. BENZTROPINE. [Suspect]
     Active Substance: BENZTROPINE
     Indication: SCHIZOPHRENIA
  2. PALIPERIDONE PALMITATE [Suspect]
     Active Substance: PALIPERIDONE PALMITATE
     Indication: SUPPORTIVE CARE
     Route: 030
  3. RISPERIDONE. [Suspect]
     Active Substance: RISPERIDONE
     Indication: ACUTE PSYCHOSIS
     Dosage: 2MG IN THE MORNING AND 3MG IN THE EVENING
     Route: 048
  4. RISPERIDONE. [Suspect]
     Active Substance: RISPERIDONE
     Indication: SCHIZOPHRENIA
  5. BENZTROPINE. [Suspect]
     Active Substance: BENZTROPINE
     Indication: ACUTE PSYCHOSIS
     Route: 065
  6. PALIPERIDONE PALMITATE [Suspect]
     Active Substance: PALIPERIDONE PALMITATE
     Indication: SCHIZOPHRENIA
     Route: 030

REACTIONS (3)
  - Autonomic nervous system imbalance [Unknown]
  - Sinus tachycardia [Unknown]
  - Supraventricular extrasystoles [Unknown]
